FAERS Safety Report 6861067-4 (Version None)
Quarter: 2010Q3

REPORT INFORMATION
  Report Type: 
  Country: None (occurrence: None)
  Receive Date: 20100720
  Receipt Date: 20100707
  Transmission Date: 20110219
  Serious: Yes (Hospitalization, Other)
  Sender: FDA-Public Use
  Company Number: PHHO2009JP16123

PATIENT
  Sex: Male
  Weight: 53 kg

DRUGS (9)
  1. EXELON [Suspect]
     Indication: DEMENTIA ALZHEIMER'S TYPE
     Dosage: 4.5MG
     Route: 062
     Dates: start: 20090404, end: 20090501
  2. EXELON [Suspect]
     Dosage: 9.0MG
     Route: 062
     Dates: start: 20090505, end: 20090605
  3. EXELON [Suspect]
     Dosage: 13.5MG
     Route: 062
     Dates: start: 20090606, end: 20090629
  4. EXELON [Suspect]
     Dosage: 18MG
     Route: 062
     Dates: start: 20090630, end: 20100703
  5. EXELON [Suspect]
     Dosage: 13.5MG
     Route: 062
     Dates: start: 20090704, end: 20100118
  6. EXELON [Suspect]
     Dosage: 18MG
     Route: 062
     Dates: start: 20100119
  7. RESLIN [Suspect]
     Indication: BEHAVIOURAL AND PSYCHIATRIC SYMPTOMS OF DEMENTIA
     Dosage: 25 MG / DAY
     Route: 048
     Dates: start: 20091113
  8. ABILIFY [Suspect]
     Indication: BEHAVIOURAL AND PSYCHIATRIC SYMPTOMS OF DEMENTIA
     Dosage: 12 ML / DAY
     Route: 048
     Dates: start: 20090918
  9. DEPAKENE [Suspect]
     Indication: BEHAVIOURAL AND PSYCHIATRIC SYMPTOMS OF DEMENTIA
     Dosage: 10 ML / DAY
     Route: 048
     Dates: start: 20090918

REACTIONS (7)
  - ACTIVITIES OF DAILY LIVING IMPAIRED [None]
  - BEHAVIOURAL AND PSYCHIATRIC SYMPTOMS OF DEMENTIA [None]
  - DEHYDRATION [None]
  - DEMENTIA ALZHEIMER'S TYPE [None]
  - HYPOTENSION [None]
  - PORIOMANIA [None]
  - URINARY INCONTINENCE [None]
